FAERS Safety Report 5337762-5 (Version None)
Quarter: 2007Q2

REPORT INFORMATION
  Report Type: 
  Country: None (occurrence: None)
  Receive Date: 20070308
  Receipt Date: 20061227
  Transmission Date: 20071010
  Serious: No
  Sender: FDA-Public Use
  Company Number: 2006-BP-14988BP

PATIENT
  Age: 88 Year
  Sex: Female

DRUGS (6)
  1. SPIRIVA [Suspect]
     Indication: CHRONIC OBSTRUCTIVE PULMONARY DISEASE
     Dosage: 18 MCG (18 MCG), IH
     Route: 055
     Dates: start: 20060301
  2. LASIX [Concomitant]
  3. LOTREL [Concomitant]
  4. SYNTHROID [Concomitant]
  5. POTASSIUM ACETATE [Concomitant]
  6. NEXIUM(ESOMEPRAZOLE SODIUM0 [Concomitant]

REACTIONS (3)
  - JOINT SWELLING [None]
  - OEDEMA PERIPHERAL [None]
  - URINARY RETENTION [None]
